FAERS Safety Report 7222058-7 (Version None)
Quarter: 2011Q1

REPORT INFORMATION
  Report Type: 
  Country: None (occurrence: None)
  Receive Date: 20110112
  Receipt Date: 20101231
  Transmission Date: 20110831
  Serious: Yes (Other)
  Sender: FDA-Public Use
  Company Number: PHHY2010NL90282

PATIENT
  Age: 28 Year
  Sex: Male

DRUGS (4)
  1. PREDNISONE [Suspect]
     Indication: ACUTE FEBRILE NEUTROPHILIC DERMATOSIS
     Dosage: 1 MG/KG, UNK
  2. AZATHIOPRINE [Suspect]
     Indication: ACUTE FEBRILE NEUTROPHILIC DERMATOSIS
     Dosage: 50 MG, BID
  3. CYCLOSPORINE [Suspect]
     Indication: BONE MARROW FAILURE
     Dosage: 125 MG, BID
  4. PREDNISONE [Suspect]
     Dosage: 30 MG, QD

REACTIONS (3)
  - RENAL IMPAIRMENT [None]
  - OSTEONECROSIS [None]
  - DISEASE PROGRESSION [None]
